FAERS Safety Report 13821940 (Version 1)
Quarter: 2017Q3

REPORT INFORMATION
  Report Type: Spontaneous
  Country: GB (occurrence: GB)
  Receive Date: 20170801
  Receipt Date: 20170801
  Transmission Date: 20171127
  Serious: Yes (Other)
  Sender: FDA-Public Use
  Company Number: GB-ACCORD-056411

PATIENT
  Age: 34 Year
  Sex: Female
  Weight: 80 kg

DRUGS (8)
  1. BETAHISTINE [Concomitant]
     Active Substance: BETAHISTINE
     Dates: start: 20170525, end: 20170622
  2. YASMIN [Concomitant]
     Active Substance: DROSPIRENONE\ETHINYL ESTRADIOL
     Dosage: AS DIRECTED
     Dates: start: 20170609
  3. MAROL [Concomitant]
     Active Substance: TRAMADOL HYDROCHLORIDE
     Dosage: PROLONGED RELEASE
     Dates: start: 20170525, end: 20170624
  4. NAPROXEN. [Concomitant]
     Active Substance: NAPROXEN
     Dates: start: 20161213
  5. ZAPAIN [Concomitant]
     Active Substance: ACETAMINOPHEN\CODEINE PHOSPHATE
     Dosage: 1-2 UP TO FOUR TIMES A DAY
     Dates: start: 20161028
  6. SERTRALINE [Interacting]
     Active Substance: SERTRALINE HYDROCHLORIDE
     Indication: PRODUCT USED FOR UNKNOWN INDICATION
  7. TRAMADOL/TRAMADOL HYDROCHLORIDE [Suspect]
     Active Substance: TRAMADOL HYDROCHLORIDE
     Indication: PRODUCT USED FOR UNKNOWN INDICATION
     Route: 048
     Dates: start: 20170712
  8. LANSOPRAZOLE. [Concomitant]
     Active Substance: LANSOPRAZOLE
     Dates: start: 20161213

REACTIONS (2)
  - Drug interaction [Unknown]
  - Serotonin syndrome [Recovered/Resolved]

NARRATIVE: CASE EVENT DATE: 20170712
